FAERS Safety Report 11131466 (Version 1)
Quarter: 2015Q2

REPORT INFORMATION
  Report Type: Spontaneous
  Country: CA (occurrence: None)
  Receive Date: 20150520
  Receipt Date: 20150520
  Transmission Date: 20150821
  Serious: Yes (Hospitalization)
  Sender: FDA-Public Use
  Company Number: 2015HINLIT0441

PATIENT
  Age: 64 Year
  Sex: Male

DRUGS (2)
  1. ARTHROTEC (DICLOFENAC/MISOPROSTOL) [Concomitant]
  2. DONEPEZIL [Suspect]
     Active Substance: DONEPEZIL
     Indication: DEMENTIA ALZHEIMER^S TYPE

REACTIONS (1)
  - Mania [None]
